FAERS Safety Report 7970794 (Version 4)
Quarter: 2012Q4

REPORT INFORMATION
  Report Type: 
  Country: JP (occurrence: JP)
  Receive Date: 20110602
  Receipt Date: 20121105
  Transmission Date: 20130627
  Serious: Yes (Death, Life-Threatening, Hospitalization, Other)
  Sender: FDA-Public Use
  Company Number: JP-ASTELLAS-2011US002520

PATIENT
  Age: 84 Year
  Sex: Female
  Weight: 41 kg

DRUGS (11)
  1. TARCEVA [Suspect]
     Indication: LUNG NEOPLASM MALIGNANT
     Dosage: 150 mg, UID/QD
     Route: 048
     Dates: start: 20110301, end: 20110310
  2. CONIEL [Concomitant]
     Indication: HYPERTENSION
     Dosage: 4 mg, UID/QD
     Route: 048
  3. DEPAS [Concomitant]
     Indication: ANXIETY
     Dosage: 0.5 mg, bid
     Route: 048
  4. SELBEX [Concomitant]
     Indication: GASTRITIS PROPHYLAXIS
     Dosage: 0.5 g, tid
     Route: 048
  5. LOXONIN [Concomitant]
     Indication: CANCER PAIN
     Dosage: 60 mg, tid
     Route: 048
  6. LYRICA [Concomitant]
     Indication: CANCER PAIN
     Dosage: 25 mg, UID/QD
     Route: 048
  7. FAMOTIDIN [Concomitant]
     Indication: GASTRITIS PROPHYLAXIS
     Dosage: 20 mg, bid
  8. OXINORM                            /00045603/ [Concomitant]
     Indication: CANCER PAIN
     Dosage: UNK
     Route: 048
  9. MAGMITT [Concomitant]
     Indication: CONSTIPATION PROPHYLAXIS
     Dosage: 660 mg, tid
     Route: 048
  10. NOVAMIN                            /00013301/ [Concomitant]
     Indication: PRODUCT USED FOR UNKNOWN INDICATION
     Dosage: 1 DF, tid
     Route: 048
  11. OXYCONTIN [Concomitant]
     Indication: CANCER PAIN
     Dosage: 5 mg, bid
     Route: 048

REACTIONS (7)
  - Respiratory failure [Fatal]
  - Interstitial lung disease [Fatal]
  - Diarrhoea [Unknown]
  - Nausea [Unknown]
  - Pneumonia bacterial [Fatal]
  - Malignant neoplasm progression [Fatal]
  - Cancer pain [Unknown]
